FAERS Safety Report 12247214 (Version 3)
Quarter: 2016Q2

REPORT INFORMATION
  Report Type: Report from Study
  Country: MX (occurrence: MX)
  Receive Date: 20160407
  Receipt Date: 20160509
  Transmission Date: 20160815
  Serious: Yes (Death)
  Sender: FDA-Public Use
  Company Number: PHHY2016MX045799

PATIENT
  Sex: Male

DRUGS (2)
  1. HIPOKINON [Concomitant]
     Indication: PARKINSON^S DISEASE
     Dosage: 0.5 DF, UNK
     Route: 048
  2. STALEVO [Suspect]
     Active Substance: CARBIDOPA\ENTACAPONE\LEVODOPA
     Indication: PARKINSON^S DISEASE
     Dosage: 2 DF, QD (200/50/200 MG) (1 IN EVERY 12 HOURS)
     Route: 048

REACTIONS (1)
  - Parkinson^s disease [Fatal]
